FAERS Safety Report 6566505-2 (Version None)
Quarter: 2010Q1

REPORT INFORMATION
  Report Type: 
  Country: None (occurrence: None)
  Receive Date: 20100202
  Receipt Date: 20090709
  Transmission Date: 20100710
  Serious: Yes (Death)
  Sender: FDA-Public Use
  Company Number: PHEH2009US18879

PATIENT
  Sex: Female

DRUGS (1)
  1. TOBI [Suspect]
     Indication: CYSTIC FIBROSIS
     Dosage: 45 MG, BID, DAYS 1-14 EACH MONTH
     Dates: start: 20081020, end: 20090519

REACTIONS (1)
  - DEATH [None]
